FAERS Safety Report 13022625 (Version 2)
Quarter: 2016Q4

REPORT INFORMATION
  Report Type: Spontaneous
  Country: CA (occurrence: CA)
  Receive Date: 20161213
  Receipt Date: 20161220
  Transmission Date: 20170207
  Serious: Yes (Other)
  Sender: FDA-Public Use
  Company Number: CA-PFIZER INC-2016528213

PATIENT
  Age: 21 Year
  Sex: Male
  Weight: 63.49 kg

DRUGS (2)
  1. SULFASALAZINE. [Suspect]
     Active Substance: SULFASALAZINE
     Indication: RHEUMATOID ARTHRITIS
     Dosage: 4 G, DAILY
     Route: 048
     Dates: start: 201411
  2. VYVANSE [Concomitant]
     Active Substance: LISDEXAMFETAMINE DIMESYLATE
     Dosage: UNK
     Dates: start: 201512

REACTIONS (3)
  - Gait disturbance [Unknown]
  - Rheumatoid arthritis [Unknown]
  - Pain [Unknown]

NARRATIVE: CASE EVENT DATE: 20161204
